FAERS Safety Report 8418458-X (Version None)
Quarter: 2012Q2

REPORT INFORMATION
  Report Type: 
  Country: None (occurrence: None)
  Receive Date: 20120323
  Receipt Date: 20110722
  Transmission Date: 20120825
  Serious: Yes (Other)
  Sender: FDA-Public Use
  Company Number: 163-21880-11022143

PATIENT
  Age: 73 Year
  Sex: Female

DRUGS (9)
  1. BENADRYL [Concomitant]
  2. REVLIMID [Suspect]
     Indication: MYELODYSPLASTIC SYNDROME
     Dosage: 10 MG, 1 IN 1 D, PO ; 5 MG, QOD, PO
     Route: 048
     Dates: start: 20091101
  3. REVLIMID [Suspect]
     Indication: MYELODYSPLASTIC SYNDROME
     Dosage: 10 MG, 1 IN 1 D, PO ; 5 MG, QOD, PO
     Route: 048
     Dates: start: 20100701
  4. REVLIMID [Suspect]
     Indication: MYELODYSPLASTIC SYNDROME
     Dosage: 10 MG, 1 IN 1 D, PO ; 5 MG, QOD, PO
     Route: 048
     Dates: start: 20110401
  5. PROCRIT [Concomitant]
  6. ZINC (ZINC) [Concomitant]
  7. ZIAC [Concomitant]
  8. LEXAPRO [Concomitant]
  9. CENTRUM (CENTRUM) [Concomitant]

REACTIONS (2)
  - THROMBOCYTOPENIA [None]
  - NEUTROPENIA [None]
